FAERS Safety Report 5888396-5 (Version None)
Quarter: 2008Q3

REPORT INFORMATION
  Report Type: 
  Country: None (occurrence: None)
  Receive Date: 20080918
  Receipt Date: 20080908
  Transmission Date: 20090109
  Serious: No
  Sender: FDA-Public Use
  Company Number: US-WYE-H05466508

PATIENT
  Sex: Female
  Weight: 59.02 kg

DRUGS (7)
  1. DESVENLAFAXINE SUCCINATE MONOHYDRATE [Suspect]
     Indication: DEPRESSION
     Route: 048
     Dates: start: 20080801, end: 20080801
  2. DESVENLAFAXINE SUCCINATE MONOHYDRATE [Suspect]
     Indication: ANXIETY
  3. TRAZODONE HCL [Concomitant]
     Indication: INSOMNIA
     Route: 065
  4. NORCO [Concomitant]
     Indication: NECK PAIN
     Dosage: UNKNOWN DOSE AS NEEDED
     Route: 065
     Dates: start: 20030101
  5. FOSAMAX [Concomitant]
     Indication: OSTEOPOROSIS
     Route: 065
  6. EFFEXOR XR [Suspect]
     Dosage: 75 MG (FREQUENCY UNKNOWN)
     Route: 065
  7. ZOCOR [Concomitant]
     Indication: BLOOD CHOLESTEROL INCREASED
     Route: 065

REACTIONS (5)
  - CONFUSIONAL STATE [None]
  - DEPRESSED LEVEL OF CONSCIOUSNESS [None]
  - DISORIENTATION [None]
  - DIZZINESS [None]
  - HEART RATE INCREASED [None]
